APPROVED DRUG PRODUCT: GEODON
Active Ingredient: ZIPRASIDONE HYDROCHLORIDE
Strength: EQ 60MG BASE
Dosage Form/Route: CAPSULE;ORAL
Application: N020825 | Product #003 | TE Code: AB
Applicant: VIATRIS SPECIALTY LLC
Approved: Feb 5, 2001 | RLD: Yes | RS: No | Type: RX